FAERS Safety Report 6111806-5 (Version None)
Quarter: 2009Q1

REPORT INFORMATION
  Report Type: 
  Country: None (occurrence: None)
  Receive Date: 20090311
  Receipt Date: 20090227
  Transmission Date: 20090719
  Serious: Yes (Other)
  Sender: FDA-Public Use
  Company Number: PT-ROCHE-618519

PATIENT
  Age: 75 Year
  Sex: Male

DRUGS (2)
  1. XELODA [Suspect]
     Indication: DRUG USE FOR UNKNOWN INDICATION
     Dosage: FREQUENCY:3 TABLETS IN THE MORNING+2 TABLETSIN THE EVENING.CYCLES WITH 4DAYS OF INTERVAL.
     Route: 065
  2. OXALIPLATIN [Concomitant]

REACTIONS (6)
  - DIARRHOEA [None]
  - GASTROINTESTINAL OEDEMA [None]
  - GENERALISED OEDEMA [None]
  - HAEMOGLOBIN DECREASED [None]
  - MOBILITY DECREASED [None]
  - PROTEIN TOTAL DECREASED [None]
